FAERS Safety Report 19948354 (Version 1)
Quarter: 2021Q4

REPORT INFORMATION
  Report Type: Spontaneous
  Country: US (occurrence: US)
  Receive Date: 20211012
  Receipt Date: 20211012
  Transmission Date: 20220303
  Serious: No
  Sender: FDA-Public Use
  Company Number: US-BAUSCH-BL-2021-032802

PATIENT
  Age: 78 Year
  Sex: Female

DRUGS (2)
  1. DILTIAZEM HYDROCHLORIDE [Suspect]
     Active Substance: DILTIAZEM HYDROCHLORIDE
     Indication: Tachycardia
     Route: 065
  2. DILTIAZEM HYDROCHLORIDE [Suspect]
     Active Substance: DILTIAZEM HYDROCHLORIDE
     Route: 048
     Dates: start: 20210923, end: 20210923

REACTIONS (1)
  - Initial insomnia [Unknown]
